FAERS Safety Report 5097222-6 (Version None)
Quarter: 2006Q3

REPORT INFORMATION
  Report Type: 
  Country: None (occurrence: None)
  Receive Date: 20060901
  Receipt Date: 20060824
  Transmission Date: 20061208
  Serious: Yes (Death)
  Sender: FDA-Public Use
  Company Number: USA-2006-0024861

PATIENT
  Age: 51 Year
  Sex: Male

DRUGS (1)
  1. OXYCONTIN [Suspect]
     Indication: OSTEOARTHRITIS

REACTIONS (4)
  - COMPLETED SUICIDE [None]
  - DEPRESSION [None]
  - GUN SHOT WOUND [None]
  - INCORRECT DOSE ADMINISTERED [None]
